FAERS Safety Report 10204059 (Version 2)
Quarter: 2014Q2

REPORT INFORMATION
  Report Type: Spontaneous
  Country: NO (occurrence: None)
  Receive Date: 20140523
  Receipt Date: 20140619
  Transmission Date: 20141212
  Serious: Yes (Death)
  Sender: FDA-Public Use
  Company Number: 2014-NO-006048

PATIENT
  Age: 65 Year
  Sex: Female

DRUGS (1)
  1. KIDROLASE (ESCHERICHIA COLI L-ASPARAGINASE) INJECTION [Suspect]
     Indication: NON-HODGKIN^S LYMPHOMA

REACTIONS (1)
  - Intracranial venous sinus thrombosis [None]
